FAERS Safety Report 9467163 (Version 3)
Quarter: 2013Q4

REPORT INFORMATION
  Report Type: Spontaneous
  Country: US (occurrence: US)
  Receive Date: 20130820
  Receipt Date: 20131025
  Transmission Date: 20140711
  Serious: Yes (Hospitalization, Other)
  Sender: FDA-Public Use
  Company Number: US-009507513-1308USA007891

PATIENT
  Age: 65 Year
  Sex: Male

DRUGS (1)
  1. JANUMET XR [Suspect]
     Indication: DIABETES MELLITUS
     Dosage: 100/1000 MG, QD
     Route: 048
     Dates: start: 201304, end: 2013

REACTIONS (5)
  - Adverse event [Recovered/Resolved]
  - Renal impairment [Recovered/Resolved]
  - Intensive care [Recovered/Resolved]
  - Lactic acidosis [Unknown]
  - Renal failure acute [Unknown]
